FAERS Safety Report 24248631 (Version 1)
Quarter: 2024Q3

REPORT INFORMATION
  Report Type: Spontaneous
  Country: JP (occurrence: JP)
  Receive Date: 20240826
  Receipt Date: 20240826
  Transmission Date: 20241016
  Serious: Yes (Hospitalization, Other)
  Sender: AMGEN
  Company Number: JP-KYOWAKIRIN-2024KK019234

PATIENT
  Sex: Male

DRUGS (7)
  1. FILGRASTIM [Suspect]
     Active Substance: FILGRASTIM
     Indication: White blood cell count decreased
     Dosage: UNK, SINGLE
     Route: 058
  2. LITHIUM CARBONATE [Concomitant]
     Active Substance: LITHIUM CARBONATE
     Indication: Mania
     Dosage: UNK
     Route: 065
  3. LITHIUM CARBONATE [Concomitant]
     Active Substance: LITHIUM CARBONATE
     Indication: White blood cell count decreased
     Dosage: UNK
     Route: 065
  4. RISPERDAL [Concomitant]
     Active Substance: RISPERIDONE
     Indication: Product used for unknown indication
     Dosage: 6 MG
     Route: 048
  5. TOCOPHERYL NICOTINATE, D-.ALPHA. [Concomitant]
     Active Substance: TOCOPHERYL NICOTINATE, D-.ALPHA.
     Indication: Product used for unknown indication
     Dosage: UNK
     Route: 048
  6. REXULTI [Concomitant]
     Active Substance: BREXPIPRAZOLE
     Indication: Hallucination, auditory
     Dosage: 1 MG
     Route: 065
  7. CLOZARIL [Concomitant]
     Active Substance: CLOZAPINE
     Indication: Product used for unknown indication
     Dosage: UNK
     Route: 065

REACTIONS (12)
  - Hallucination, auditory [Unknown]
  - Parkinsonism [Unknown]
  - Anxiety [Unknown]
  - Hospitalisation [Unknown]
  - Hospitalisation [Unknown]
  - Hospitalisation [Unknown]
  - Mania [Unknown]
  - Dyskinesia [Recovering/Resolving]
  - Visual impairment [Unknown]
  - Irritability [Unknown]
  - Adverse event [Unknown]
  - Off label use [Unknown]
